FAERS Safety Report 5701970-1 (Version None)
Quarter: 2008Q2

REPORT INFORMATION
  Report Type: 
  Country: None (occurrence: None)
  Receive Date: 20080411
  Receipt Date: 20070417
  Transmission Date: 20081010
  Serious: No
  Sender: FDA-Public Use
  Company Number: US-ABBOTT-07P-163-0365364-00

PATIENT
  Age: 8 Year
  Sex: Male

DRUGS (4)
  1. DIVALPROEX [Suspect]
     Indication: BIPOLAR DISORDER
  2. QUETIAPINE FUMARATE [Concomitant]
     Indication: BIPOLAR DISORDER
     Dosage: NOT REPORTED
  3. GUANFACINE HYDROCHLORIDE [Concomitant]
     Indication: BIPOLAR DISORDER
     Dosage: NOT REPORTED
  4. CITALOPRAM HYDROBROMIDE [Concomitant]
     Indication: BIPOLAR DISORDER
     Dosage: NOT REPORTED

REACTIONS (1)
  - NAUSEA [None]
